FAERS Safety Report 9433833 (Version 1)
Quarter: 2013Q3

REPORT INFORMATION
  Report Type: Spontaneous
  Country: US (occurrence: US)
  Receive Date: 20130731
  Receipt Date: 20130731
  Transmission Date: 20140515
  Serious: Yes (Other)
  Sender: FDA-Public Use
  Company Number: US-JNJFOC-20130712677

PATIENT
  Age: 72 Year
  Sex: Female
  Weight: 72.58 kg

DRUGS (3)
  1. SUDAFED 12 HOUR [Suspect]
     Route: 048
  2. SUDAFED 12 HOUR [Suspect]
     Indication: RHINORRHOEA
     Dosage: ONE CAPLET, ONE TIME
     Route: 048
     Dates: start: 201306
  3. LEVOTHROID [Concomitant]
     Indication: THYROID DISORDER
     Route: 065

REACTIONS (2)
  - Heart rate increased [Recovered/Resolved]
  - Physical product label issue [Unknown]
